FAERS Safety Report 9233264 (Version 2)
Quarter: 2013Q2

REPORT INFORMATION
  Report Type: Spontaneous
  Country: US (occurrence: US)
  Receive Date: 20130416
  Receipt Date: 20130416
  Transmission Date: 20140414
  Serious: No
  Sender: FDA-Public Use
  Company Number: US-BANPHARM-20130691

PATIENT
  Age: 62 Year
  Sex: Male
  Weight: 97.51 kg

DRUGS (1)
  1. NAPROXEN SODIUM 220MG [Suspect]
     Indication: PAIN
     Dosage: 1 DF Q6H (TOTAL 3 DF),
     Route: 048
     Dates: start: 20120227, end: 20120227

REACTIONS (2)
  - Epistaxis [Recovered/Resolved]
  - Hypersensitivity [Unknown]
